FAERS Safety Report 6956782-8 (Version None)
Quarter: 2010Q3

REPORT INFORMATION
  Report Type: 
  Country: None (occurrence: None)
  Receive Date: 20100830
  Receipt Date: 20100722
  Transmission Date: 20110219
  Serious: No
  Sender: FDA-Public Use
  Company Number: US-BAUSCH-2010BL003998

PATIENT

DRUGS (1)
  1. DEXAMETHASONE SODIUM PHOSPHATE OPHTHALMIC SOLUTION,0.1% [Suspect]

REACTIONS (2)
  - ANOSMIA [None]
  - NASAL DISCOMFORT [None]
